FAERS Safety Report 8040570-8 (Version None)
Quarter: 2012Q1

REPORT INFORMATION
  Report Type: 
  Country: None (occurrence: None)
  Receive Date: 20120111
  Receipt Date: 20111230
  Transmission Date: 20120608
  Serious: No
  Sender: FDA-Public Use
  Company Number: US-AMGEN-USASP2011069797

PATIENT
  Sex: Female

DRUGS (3)
  1. HUMIRA [Concomitant]
  2. METHOTREXATE [Concomitant]
  3. ENBREL [Suspect]
     Indication: RHEUMATOID ARTHRITIS
     Dosage: 50 MG, QWK
     Dates: start: 20060101

REACTIONS (4)
  - LUNG DISORDER [None]
  - DRUG INEFFECTIVE [None]
  - RASH [None]
  - INJECTION SITE INDURATION [None]
